FAERS Safety Report 22172902 (Version 1)
Quarter: 2023Q2

REPORT INFORMATION
  Report Type: Spontaneous
  Country: US (occurrence: None)
  Receive Date: 20230403
  Receipt Date: 20230403
  Transmission Date: 20230722
  Serious: No
  Sender: FDA-Public Use
  Company Number: None

PATIENT
  Sex: 0

DRUGS (2)
  1. PRILOSEC [Suspect]
     Active Substance: OMEPRAZOLE MAGNESIUM
  2. CARAFATE [Suspect]
     Active Substance: SUCRALFATE
     Dosage: FREQUENCY : 4 TIMES A DAY;?

REACTIONS (1)
  - Treatment failure [None]
